FAERS Safety Report 10673951 (Version 1)
Quarter: 2014Q4

REPORT INFORMATION
  Report Type: Spontaneous
  Country: US (occurrence: None)
  Receive Date: 20141222
  Receipt Date: 20141222
  Transmission Date: 20150529
  Serious: Yes (Other)
  Sender: FDA-Public Use
  Company Number: US-2014VAL000664

PATIENT
  Age: 67 Year
  Sex: Female

DRUGS (13)
  1. METOPROLOL TARTRATE. [Suspect]
     Active Substance: METOPROLOL TARTRATE
     Indication: BLOOD PRESSURE ABNORMAL
  2. DIOVAN [Suspect]
     Active Substance: VALSARTAN
     Indication: BLOOD PRESSURE ABNORMAL
  3. ESTRADIOL(ESTRADIOL) [Concomitant]
  4. CHOLECALCIFEROL(COLECALCIFEROL) [Concomitant]
  5. COQ10/(UBIDECARENONE) [Concomitant]
  6. AMLODIPINE [Suspect]
     Active Substance: AMLODIPINE BESYLATE
     Indication: BLOOD PRESSURE ABNORMAL
  7. LEVOTHYROXINE(LEVOTHYROXINE) [Concomitant]
  8. ASPIRIN(ACETYSALICYLIC ACID) [Concomitant]
  9. CRESTOR(ROSUVASTATIN CALCIUM) [Concomitant]
  10. TEKTURNA [Suspect]
     Active Substance: ALISKIREN HEMIFUMARATE
     Indication: BLOOD PRESSURE ABNORMAL
  11. AVONEX [Suspect]
     Active Substance: INTERFERON BETA-1A
     Indication: MULTIPLE SCLEROSIS
  12. PLAVIX(CLPIDOGREL BISULFATE) [Concomitant]
  13. VITAMIN C/(ASCORBIC ACID) [Concomitant]

REACTIONS (7)
  - Hypertension [None]
  - Arterial disorder [None]
  - Blood immunoglobulin E increased [None]
  - Thrombosis [None]
  - Blood cholesterol increased [None]
  - Transient ischaemic attack [None]
  - Ulcer haemorrhage [None]
